FAERS Safety Report 12768763 (Version 2)
Quarter: 2021Q3

REPORT INFORMATION
  Report Type: Spontaneous
  Country: US (occurrence: US)
  Receive Date: 20160921
  Receipt Date: 20210817
  Transmission Date: 20211014
  Serious: No
  Sender: FDA-Public Use
  Company Number: US-JAZZ-2016-US-010266

PATIENT
  Sex: Female

DRUGS (24)
  1. BACLOFEN. [Concomitant]
     Active Substance: BACLOFEN
  2. CITALOPRAM [Concomitant]
     Active Substance: CITALOPRAM HYDROBROMIDE
  3. CYCLOBENZAPRINE [CYCLOBENZAPRINE HYDROCHLORIDE] [Concomitant]
     Active Substance: CYCLOBENZAPRINE HYDROCHLORIDE
  4. XYREM [Suspect]
     Active Substance: SODIUM OXYBATE
     Dosage: 4.5 G, BID
     Route: 048
     Dates: start: 201505
  5. VYVANSE [Concomitant]
     Active Substance: LISDEXAMFETAMINE DIMESYLATE
  6. DEXTROAMPHET SACCHARAT, AMPHET ASPARTATE, DEXTROAMPHET SULFATE AND AMPHET SULFAT [Concomitant]
     Active Substance: AMPHETAMINE ASPARTATE\AMPHETAMINE SULFATE\DEXTROAMPHETAMINE SACCHARATE\DEXTROAMPHETAMINE SULFATE
  7. ADDERALL [Concomitant]
     Active Substance: AMPHETAMINE ASPARTATE\AMPHETAMINE SULFATE\DEXTROAMPHETAMINE SACCHARATE\DEXTROAMPHETAMINE SULFATE
  8. CLARITIN [Concomitant]
     Active Substance: LORATADINE
  9. ESCITALOPRAM [ESCITALOPRAM OXALATE] [Concomitant]
     Active Substance: ESCITALOPRAM OXALATE
  10. MUCINEX [Concomitant]
     Active Substance: GUAIFENESIN
  11. DESOXYN [Concomitant]
     Active Substance: METHAMPHETAMINE HYDROCHLORIDE
  12. VICODIN [Concomitant]
     Active Substance: ACETAMINOPHEN\HYDROCODONE BITARTRATE
  13. XYREM [Suspect]
     Active Substance: SODIUM OXYBATE
     Dosage: 4.5 G, BID
     Route: 048
     Dates: start: 201405, end: 2014
  14. XYREM [Suspect]
     Active Substance: SODIUM OXYBATE
     Dosage: 3 G, BID
     Route: 048
     Dates: start: 201503, end: 201505
  15. SPIRONOLACTONE. [Concomitant]
     Active Substance: SPIRONOLACTONE
  16. XYREM [Suspect]
     Active Substance: SODIUM OXYBATE
     Indication: NARCOLEPSY
     Dosage: 2.25 G, BID
     Route: 048
     Dates: start: 201112, end: 201202
  17. XYREM [Suspect]
     Active Substance: SODIUM OXYBATE
     Indication: CATAPLEXY
     Dosage: DOSE ADJUSTMENTS
     Route: 048
  18. CLONAZEPAM. [Concomitant]
     Active Substance: CLONAZEPAM
  19. NUVIGIL [Concomitant]
     Active Substance: ARMODAFINIL
  20. NALTREXONE HCL [Concomitant]
     Active Substance: NALTREXONE HYDROCHLORIDE
  21. LEVOTHYROXINE [LEVOTHYROXINE SODIUM] [Concomitant]
     Active Substance: LEVOTHYROXINE SODIUM
  22. PROPRANOLOL [PROPRANOLOL HYDROCHLORIDE] [Concomitant]
     Active Substance: PROPRANOLOL HYDROCHLORIDE
  23. XYREM [Suspect]
     Active Substance: SODIUM OXYBATE
     Dosage: 2.25 G, BID
     Route: 048
     Dates: start: 201302, end: 2013
  24. MIRENA [Concomitant]
     Active Substance: LEVONORGESTREL

REACTIONS (2)
  - Anxiety [Unknown]
  - Blood pressure increased [Unknown]
